FAERS Safety Report 18740212 (Version 1)
Quarter: 2021Q1

REPORT INFORMATION
  Report Type: Spontaneous
  Country: US (occurrence: US)
  Receive Date: 20210114
  Receipt Date: 20210114
  Transmission Date: 20210419
  Serious: Yes (Death, Hospitalization)
  Sender: FDA-Public Use
  Company Number: None

PATIENT
  Sex: Male
  Weight: 93.3 kg

DRUGS (3)
  1. IFOSFAMIDE. [Concomitant]
     Active Substance: IFOSFAMIDE
  2. CISPLATIN. [Suspect]
     Active Substance: CISPLATIN
  3. TAXOL [Concomitant]
     Active Substance: PACLITAXEL

REACTIONS (11)
  - Hyperventilation [None]
  - Intracranial haematoma [None]
  - Brain midline shift [None]
  - Seizure [None]
  - Muscle rigidity [None]
  - Dizziness [None]
  - Cerebrovascular accident [None]
  - Headache [None]
  - Cardio-respiratory arrest [None]
  - Malignant neoplasm progression [None]
  - Metastases to central nervous system [None]

NARRATIVE: CASE EVENT DATE: 20201129
